FAERS Safety Report 9941054 (Version 1)
Quarter: 2014Q1

REPORT INFORMATION
  Report Type: Report from Study
  Country: US (occurrence: US)
  Receive Date: 20140303
  Receipt Date: 20140303
  Transmission Date: 20141002
  Serious: No
  Sender: FDA-Public Use
  Company Number: US-ABBVIE-13P-163-1042717-00

PATIENT
  Sex: Female

DRUGS (3)
  1. HUMIRA [Suspect]
     Indication: RHEUMATOID ARTHRITIS
     Route: 058
     Dates: start: 2009, end: 201204
  2. HUMIRA [Suspect]
     Route: 058
     Dates: start: 20130115
  3. FLU SHOT [Suspect]
     Indication: PROPHYLAXIS
     Dates: start: 20130116, end: 20130116

REACTIONS (3)
  - Influenza [Recovering/Resolving]
  - Cough [Not Recovered/Not Resolved]
  - Drug ineffective [Not Recovered/Not Resolved]
